FAERS Safety Report 13945490 (Version 1)
Quarter: 2017Q3

REPORT INFORMATION
  Report Type: Spontaneous
  Country: US (occurrence: US)
  Receive Date: 20170907
  Receipt Date: 20170907
  Transmission Date: 20171128
  Serious: No
  Sender: FDA-Public Use
  Company Number: US-ALLERGAN-1731330US

PATIENT
  Age: 39 Year
  Sex: Female

DRUGS (6)
  1. QUERCETIN [Concomitant]
     Active Substance: QUERCETIN
     Indication: SUPPLEMENTATION THERAPY
     Dosage: UNK
     Route: 048
  2. DIPROLENE [Concomitant]
     Active Substance: BETAMETHASONE DIPROPIONATE
     Indication: SUPPLEMENTATION THERAPY
     Route: 061
  3. ASPIRIN. [Concomitant]
     Active Substance: ASPIRIN
     Indication: SUPPLEMENTATION THERAPY
     Dosage: 325 MG, UNK
     Route: 048
  4. RHINOCORT [Concomitant]
     Active Substance: BUDESONIDE
     Indication: SEASONAL ALLERGY
     Dosage: UNK
     Route: 055
  5. ACZONE [Suspect]
     Active Substance: DAPSONE
     Indication: ACNE
     Dosage: 7.5 %, UNK
     Route: 061
     Dates: start: 20170718, end: 20170722
  6. BIOTIN [Concomitant]
     Active Substance: BIOTIN
     Indication: SUPPLEMENTATION THERAPY
     Dosage: UNK
     Route: 048

REACTIONS (2)
  - Diarrhoea [Recovering/Resolving]
  - Abdominal pain upper [Recovering/Resolving]

NARRATIVE: CASE EVENT DATE: 20170720
